FAERS Safety Report 7183994-3 (Version None)
Quarter: 2010Q4

REPORT INFORMATION
  Report Type: 
  Country: None (occurrence: None)
  Receive Date: 20101222
  Receipt Date: 20101221
  Transmission Date: 20110411
  Serious: Yes (Hospitalization)
  Sender: FDA-Public Use
  Company Number: CN-ROCHE-749398

PATIENT
  Age: 56 Year
  Sex: Male

DRUGS (1)
  1. PEGINTERFERON ALFA-2A [Suspect]
     Indication: HEPATITIS B
     Route: 058
     Dates: start: 20100719, end: 20101001

REACTIONS (2)
  - ASCITES [None]
  - HEPATOSPLENOMEGALY [None]
